FAERS Safety Report 5410899-8 (Version None)
Quarter: 2007Q3

REPORT INFORMATION
  Report Type: 
  Country: None (occurrence: None)
  Receive Date: 20070809
  Receipt Date: 20070809
  Transmission Date: 20080115
  Serious: Yes (Disabling)
  Sender: FDA-Public Use
  Company Number: None

PATIENT
  Sex: Male
  Weight: 92.9874 kg

DRUGS (1)
  1. CIMETIDINE [Suspect]
     Indication: GASTRIC DISORDER
     Dosage: 300 - 900 MG/DAY 1 TIME AT BEDTIME PO
     Route: 048
     Dates: start: 20061101, end: 20070501

REACTIONS (1)
  - DRUG INEFFECTIVE [None]
